FAERS Safety Report 13040714 (Version 3)
Quarter: 2017Q1

REPORT INFORMATION
  Report Type: Spontaneous
  Country: US (occurrence: US)
  Receive Date: 20161219
  Receipt Date: 20170320
  Transmission Date: 20170428
  Serious: Yes (Hospitalization)
  Sender: FDA-Public Use
  Company Number: US-PFIZER INC-2016575663

PATIENT
  Age: 99 Year
  Sex: Female

DRUGS (2)
  1. NEURONTIN [Suspect]
     Active Substance: GABAPENTIN
     Indication: NEUROPATHY PERIPHERAL
     Dosage: 600 MG, 3X/DAY
     Route: 048
  2. TRAMADOL. [Interacting]
     Active Substance: TRAMADOL
     Indication: NEUROPATHY PERIPHERAL
     Dosage: UNK, 2X/DAY

REACTIONS (6)
  - Drug interaction [Recovered/Resolved]
  - Drug ineffective for unapproved indication [Unknown]
  - Drug hypersensitivity [Unknown]
  - Body height decreased [Unknown]
  - Drug intolerance [Unknown]
  - Intentional product misuse [Unknown]
